FAERS Safety Report 4712107-X (Version None)
Quarter: 2005Q3

REPORT INFORMATION
  Report Type: 
  Country: None (occurrence: None)
  Receive Date: 20050712
  Receipt Date: 20050706
  Transmission Date: 20060218
  Serious: Yes (Death)
  Sender: FDA-Public Use
  Company Number: 200512272FR

PATIENT
  Age: 89 Year
  Sex: Male

DRUGS (8)
  1. LASIX [Suspect]
     Route: 048
     Dates: start: 20000615, end: 20030420
  2. ALDACTONE [Suspect]
     Route: 048
     Dates: start: 20000615, end: 20030420
  3. BUMETANIDE [Suspect]
     Route: 048
     Dates: start: 20000615, end: 20030413
  4. CORDARONE [Concomitant]
  5. PREVISCAN [Concomitant]
     Route: 048
  6. LEXOMIL [Concomitant]
     Route: 048
  7. BENERVA [Concomitant]
  8. POTASSIUM CHLORIDE [Concomitant]
     Route: 048

REACTIONS (6)
  - DEHYDRATION [None]
  - DIABETIC COMPLICATION [None]
  - HEPATIC FAILURE [None]
  - HYPONATRAEMIA [None]
  - MULTI-ORGAN FAILURE [None]
  - RENAL FAILURE [None]
